FAERS Safety Report 8184189 (Version 8)
Quarter: 2015Q1

REPORT INFORMATION
  Report Type: Report from Study
  Country: JP (occurrence: JP)
  Receive Date: 20111017
  Receipt Date: 20150203
  Transmission Date: 20150721
  Serious: Yes (Hospitalization)
  Sender: FDA-Public Use
  Company Number: PHHO2011JP17258

PATIENT
  Age: 82 Year
  Sex: Male
  Weight: 59 kg

DRUGS (16)
  1. ANCARON [Concomitant]
     Active Substance: AMIODARONE HYDROCHLORIDE
     Indication: VENTRICULAR TACHYCARDIA
     Dosage: 100 MG, UNK
     Route: 048
  2. THYRADIN S [Concomitant]
     Active Substance: LEVOTHYROXINE SODIUM
     Indication: HYPOTHYROIDISM
     Dosage: 25 UG, UNK
     Route: 048
  3. ALISKIREN [Suspect]
     Active Substance: ALISKIREN
     Indication: CARDIAC FAILURE
     Dosage: 150 MG, QD
     Route: 048
     Dates: start: 20100423
  4. ARTIST [Concomitant]
     Active Substance: CARVEDILOL
     Indication: CARDIAC FAILURE CHRONIC
     Dosage: 10 MG, UNK
     Route: 048
  5. PLAVIX [Concomitant]
     Active Substance: CLOPIDOGREL BISULFATE
     Indication: CARDIAC FAILURE CHRONIC
     Dosage: 75 MG, UNK
     Route: 048
  6. LASIX [Concomitant]
     Active Substance: FUROSEMIDE
     Indication: CARDIAC FAILURE CHRONIC
     Dosage: 20 MG, UNK
     Route: 048
     Dates: end: 20111008
  7. ALISKIREN [Suspect]
     Active Substance: ALISKIREN
     Dosage: 150 MG, QD
     Route: 048
     Dates: start: 20100514
  8. ALISKIREN [Suspect]
     Active Substance: ALISKIREN
     Dosage: 300 MG, QD
     Route: 048
     Dates: start: 20100604
  9. LIVALO [Concomitant]
     Active Substance: PITAVASTATIN CALCIUM
     Indication: HYPERLIPIDAEMIA
     Dosage: 2 MG, UNK
     Route: 048
  10. COMPARATOR ENALAPRIL [Suspect]
     Active Substance: ENALAPRIL
     Indication: CARDIAC FAILURE
     Dosage: 10 MG, DAILY
     Route: 048
     Dates: start: 20100319
  11. ARGAMATE [Concomitant]
     Active Substance: POLYSTYRENE
     Indication: PRODUCT USED FOR UNKNOWN INDICATION
     Route: 065
  12. ALISKIREN [Suspect]
     Active Substance: ALISKIREN
     Indication: CARDIAC FAILURE
     Dosage: UNK
     Route: 048
     Dates: start: 20100514
  13. BAYASPIRIN [Concomitant]
     Active Substance: ASPIRIN
     Indication: CARDIAC FAILURE CHRONIC
     Dosage: 100 MG, UNK
     Route: 048
  14. ALISKIREN [Suspect]
     Active Substance: ALISKIREN
     Indication: CARDIAC FAILURE CHRONIC
     Dosage: 150 MG, QD
     Route: 048
     Dates: start: 20100423
  15. COMPARATOR ENALAPRIL [Suspect]
     Active Substance: ENALAPRIL
     Dosage: 10 MG, DAILY
     Route: 048
     Dates: start: 20100423
  16. COMPARATOR ENALAPRIL [Suspect]
     Active Substance: ENALAPRIL
     Dosage: 20 MG, DAILY
     Route: 048
     Dates: start: 20100409

REACTIONS (1)
  - Cardiac failure [Recovered/Resolved]

NARRATIVE: CASE EVENT DATE: 20111001
